FAERS Safety Report 17804553 (Version 1)
Quarter: 2020Q2

REPORT INFORMATION
  Report Type: Spontaneous
  Country: US (occurrence: US)
  Receive Date: 20200519
  Receipt Date: 20200519
  Transmission Date: 20200714
  Serious: No
  Sender: FDA-Public Use
  Company Number: US-BAUSCH-BL-2020-014419

PATIENT
  Age: 92 Year
  Sex: Female
  Weight: 46.31 kg

DRUGS (2)
  1. VYZULTA [Suspect]
     Active Substance: LATANOPROSTENE BUNOD
     Indication: HEADACHE
     Dosage: STARTED: OVER A YEAR AGO
     Route: 031
     Dates: start: 2019
  2. VYZULTA [Suspect]
     Active Substance: LATANOPROSTENE BUNOD
     Indication: PRODUCT USE IN UNAPPROVED INDICATION

REACTIONS (4)
  - Product use in unapproved indication [Unknown]
  - Eye discharge [Unknown]
  - Product physical consistency issue [Unknown]
  - Expired product administered [Unknown]
